FAERS Safety Report 8336964-3 (Version None)
Quarter: 2012Q2

REPORT INFORMATION
  Report Type: 
  Country: None (occurrence: None)
  Receive Date: 20120501
  Receipt Date: 20120425
  Transmission Date: 20120825
  Serious: Yes (Other)
  Sender: FDA-Public Use
  Company Number: DSJ-2012-07903

PATIENT
  Age: 79 Year
  Sex: Male
  Weight: 69.6 kg

DRUGS (11)
  1. OLMESARTAN MEDOXOMIL [Suspect]
     Indication: HYPERTENSION
     Dosage: 20 MG (20 MG, 1 IN 1 D),PER ORAL, 10 MG (10 MG,L IN 1 D),PER ORAL
     Route: 048
     Dates: start: 20120308, end: 20120309
  2. OLMESARTAN MEDOXOMIL [Suspect]
     Indication: HYPERTENSION
     Dosage: 20 MG (20 MG, 1 IN 1 D),PER ORAL, 10 MG (10 MG,L IN 1 D),PER ORAL
     Route: 048
     Dates: start: 20120310
  3. LENDORMIN (BROTIZOLAM) (TABLET) (BROTIZOLAM) [Concomitant]
  4. FINIBAX(DORIPENEM) (INJECTION) (DORIPENEM) [Concomitant]
  5. LYRICA [Suspect]
     Indication: PHANTOM PAIN
     Dosage: 25 MG (25 MG, 1 IN 1 D),PER ORAL
     Route: 048
     Dates: start: 20120308, end: 20120309
  6. LASIX (FUROSEMIDE) (TABLET) (FUROSEMIDE) [Concomitant]
  7. CELECOXIB [Concomitant]
  8. TAKEPRON (LANSOPRAZOLE)(TABLET)(LANSOPRAZOLE) [Concomitant]
  9. ACETYLSALICYLIC ACID SRT [Concomitant]
  10. WARFARIN SODIUM [Concomitant]
  11. MAGMITT (MAGNESIUM OXIDE) (TABLET) (MAGNESIUM OXIDE) [Concomitant]

REACTIONS (2)
  - BLOOD PRESSURE DECREASED [None]
  - BLOOD UREA INCREASED [None]
